FAERS Safety Report 8326681-8 (Version None)
Quarter: 2012Q2

REPORT INFORMATION
  Report Type: 
  Country: None (occurrence: None)
  Receive Date: 20120501
  Receipt Date: 20120423
  Transmission Date: 20120825
  Serious: Yes (Hospitalization)
  Sender: FDA-Public Use
  Company Number: US-ABBOTT-12P-163-0928339-00

PATIENT
  Sex: Female

DRUGS (3)
  1. HUMIRA [Suspect]
     Indication: CROHN'S DISEASE
     Route: 058
     Dates: start: 20100101, end: 20100101
  2. HUMIRA [Suspect]
     Route: 058
     Dates: start: 20100101, end: 20100101
  3. HUMIRA [Suspect]
     Route: 058
     Dates: start: 20100101, end: 20100101

REACTIONS (10)
  - OROPHARYNGEAL PAIN [None]
  - GALLBLADDER DISORDER [None]
  - WEIGHT DECREASED [None]
  - DECREASED APPETITE [None]
  - MALNUTRITION [None]
  - INTERVERTEBRAL DISC PROTRUSION [None]
  - LYMPH GLAND INFECTION [None]
  - DEHYDRATION [None]
  - MALAISE [None]
  - LYMPHADENOPATHY [None]
